FAERS Safety Report 15042819 (Version 1)
Quarter: 2018Q2

REPORT INFORMATION
  Report Type: Spontaneous
  Country: US (occurrence: US)
  Receive Date: 20180621
  Receipt Date: 20180621
  Transmission Date: 20180711
  Serious: Yes (Other)
  Sender: FDA-Public Use
  Company Number: US-SA-2018SA158967

PATIENT
  Age: 49 Year
  Sex: Female
  Weight: 65.7 kg

DRUGS (4)
  1. TAXOTERE [Suspect]
     Active Substance: DOCETAXEL
     Indication: BREAST CANCER FEMALE
     Dosage: 600 MG/M2, QW
     Route: 042
     Dates: start: 20050401, end: 20050401
  2. CYCLOPHOSPHAMIDE. [Concomitant]
     Active Substance: CYCLOPHOSPHAMIDE
  3. TAXOTERE [Suspect]
     Active Substance: DOCETAXEL
     Dosage: 600 UNK
     Route: 042
     Dates: start: 20051001, end: 20051001
  4. EPIRUBICIN [Concomitant]
     Active Substance: EPIRUBICIN

REACTIONS (2)
  - Psychological trauma [Unknown]
  - Alopecia [Recovering/Resolving]

NARRATIVE: CASE EVENT DATE: 20050415
